FAERS Safety Report 21166139 (Version 1)
Quarter: 2022Q3

REPORT INFORMATION
  Report Type: Spontaneous
  Country: US (occurrence: None)
  Receive Date: 20220802
  Receipt Date: 20220802
  Transmission Date: 20221027
  Serious: Yes (Hospitalization, Other)
  Sender: FDA-Public Use
  Company Number: None

PATIENT
  Age: 43 Year
  Sex: Male
  Weight: 85.5 kg

DRUGS (1)
  1. MAGNESIUM CITRATE [Suspect]
     Active Substance: MAGNESIUM CITRATE
     Indication: Constipation
     Dosage: OTHER QUANTITY : 1 10 OZ;?FREQUENCY : AS NEEDED;?
     Route: 048
     Dates: start: 20220627, end: 20220723

REACTIONS (6)
  - Abdominal distension [None]
  - Abdominal pain [None]
  - Nausea [None]
  - Vomiting [None]
  - Recalled product administered [None]
  - Ileus paralytic [None]

NARRATIVE: CASE EVENT DATE: 20220703
